FAERS Safety Report 23390268 (Version 1)
Quarter: 2024Q1

REPORT INFORMATION
  Report Type: Spontaneous
  Country: US (occurrence: US)
  Receive Date: 20240111
  Receipt Date: 20240111
  Transmission Date: 20240410
  Serious: Yes (Death, Hospitalization, Other)
  Sender: FDA-Public Use
  Company Number: US-APOTEX-2024AP000692

PATIENT
  Age: 22 Month
  Sex: Female

DRUGS (2)
  1. GLIPIZIDE [Suspect]
     Active Substance: GLIPIZIDE
     Indication: Product used for unknown indication
     Dosage: UNK
     Route: 048
  2. MELATONIN [Suspect]
     Active Substance: MELATONIN
     Indication: Product used for unknown indication
     Dosage: UNK
     Route: 048

REACTIONS (13)
  - Brain death [Fatal]
  - Hypoglycaemia [Fatal]
  - Seizure [Fatal]
  - Cerebral ischaemia [Fatal]
  - Brain herniation [Fatal]
  - Disease complication [Fatal]
  - Toxicity to various agents [Fatal]
  - Hypersomnia [Fatal]
  - Musculoskeletal stiffness [Fatal]
  - Pyrexia [Fatal]
  - Hypertension [Fatal]
  - Hypertonia [Fatal]
  - Bruxism [Fatal]

NARRATIVE: CASE EVENT DATE: 20220101
